FAERS Safety Report 23500797 (Version 1)
Quarter: 2024Q1

REPORT INFORMATION
  Report Type: Spontaneous
  Country: GB (occurrence: GB)
  Receive Date: 20240208
  Receipt Date: 20240208
  Transmission Date: 20240410
  Serious: Yes (Other)
  Sender: FDA-Public Use
  Company Number: None

PATIENT
  Age: 72 Year
  Sex: Female
  Weight: 108 kg

DRUGS (20)
  1. FELODIPINE [Suspect]
     Active Substance: FELODIPINE
     Indication: Product used for unknown indication
     Dosage: 2.5 MILLIGRAM, QD
     Route: 065
     Dates: start: 20231221
  2. ATORVASTATIN [Concomitant]
     Active Substance: ATORVASTATIN
     Dosage: 1 DOSAGE FORM, QD
     Route: 065
     Dates: start: 20230319
  3. BUPRENORPHINE [Concomitant]
     Active Substance: BUPRENORPHINE
     Dosage: 1 DOSAGE FORM, QW ((REMOVE AND DISC...)
     Route: 062
     Dates: start: 20240124
  4. CEPHALEXIN [Concomitant]
     Active Substance: CEPHALEXIN
     Dosage: 1 DOSAGE FORM, TID
     Route: 065
     Dates: start: 20231207, end: 20231214
  5. CODEINE PHOSPHATE [Concomitant]
     Active Substance: CODEINE PHOSPHATE
     Dosage: UNK, QID,~TAKE ONE OR TWO TABLETS UP TO FOUR TIMES A DAY
     Route: 065
     Dates: start: 20231108, end: 20231115
  6. DAPAGLIFLOZIN [Concomitant]
     Active Substance: DAPAGLIFLOZIN
     Dosage: 1 DOSAGE FORM, QD
     Route: 065
     Dates: start: 20240129
  7. DICLOFENAC SODIUM [Concomitant]
     Active Substance: DICLOFENAC\DICLOFENAC SODIUM
     Dosage: 1 DOSAGE FORM (INSERT ONE UP TO 3 TIMES PER DAY AS REQUIRED FO...)
     Route: 065
     Dates: start: 20230710
  8. ESTRIOL [Concomitant]
     Active Substance: ESTRIOL
     Dosage: AS PER CONSULTANT UROL...
     Route: 065
     Dates: start: 20231218, end: 20240129
  9. FERROUS SULFATE [Concomitant]
     Active Substance: FERROUS SULFATE
     Dosage: WITH A MEAL
     Route: 065
     Dates: start: 20231115
  10. BECLOMETHASONE\FORMOTEROL [Concomitant]
     Active Substance: BECLOMETHASONE\FORMOTEROL
     Dosage: 1 DOSAGE FORM, BID
     Route: 065
     Dates: start: 20230703
  11. POTASSIUM BICARBONATE\SODIUM ALGINATE [Concomitant]
     Active Substance: POTASSIUM BICARBONATE\SODIUM ALGINATE
     Dosage: UNK UNK, QID (5ML - 10ML 4 TIMES/DAY)
     Route: 065
     Dates: start: 20230319
  12. INDAPAMIDE [Concomitant]
     Active Substance: INDAPAMIDE
     Dosage: EACH MORNING
     Route: 065
     Dates: start: 20230512
  13. LANSOPRAZOLE [Concomitant]
     Active Substance: LANSOPRAZOLE
     Dosage: 1 DOSAGE FORM, QD
     Route: 065
     Dates: start: 20230319
  14. LOSARTAN [Concomitant]
     Active Substance: LOSARTAN
     Dosage: 1 DOSAGE FORM, QD
     Route: 065
     Dates: start: 20230319
  15. METFORMIN [Concomitant]
     Active Substance: METFORMIN HYDROCHLORIDE
     Dosage: 1 DOSAGE FORM, QD (FOR 1-2 WEEKS, IF TOLERATING INC...)
     Route: 065
     Dates: start: 20231212
  16. MONTELUKAST [Concomitant]
     Active Substance: MONTELUKAST SODIUM
     Dosage: 1 DOSAGE FORM, QD (AT NIGHT)
     Route: 065
     Dates: start: 20230319
  17. NITROFURANTOIN [Concomitant]
     Active Substance: NITROFURANTOIN
     Dosage: 1 DOSAGE FORM, BID
     Route: 065
     Dates: start: 20231228, end: 20231231
  18. ACETAMINOPHEN [Concomitant]
     Active Substance: ACETAMINOPHEN
     Dosage: QID (ONE OR TWO FOUR TIMES/DAY)
     Route: 065
     Dates: start: 20230319
  19. TRULICITY [Concomitant]
     Active Substance: DULAGLUTIDE
     Dosage: 1.5 MILLIGRAM, QW
     Route: 065
     Dates: start: 20230319
  20. VENTOLIN [Concomitant]
     Active Substance: ALBUTEROL SULFATE
     Dosage: 2 DOSAGE FORM, QD,AS NEEDED UP TO FOUR TIMES DAILY
     Route: 055
     Dates: start: 20230319

REACTIONS (2)
  - Joint swelling [Recovered/Resolved]
  - Malaise [Unknown]

NARRATIVE: CASE EVENT DATE: 20240130
